FAERS Safety Report 4739514-3 (Version None)
Quarter: 2005Q3

REPORT INFORMATION
  Report Type: 
  Country: None (occurrence: None)
  Receive Date: 20050810
  Receipt Date: 20050330
  Transmission Date: 20060218
  Serious: No
  Sender: FDA-Public Use
  Company Number: US-GLAXOSMITHKLINE-A0551950A

PATIENT
  Age: 50 Year
  Sex: Female

DRUGS (4)
  1. PAXIL [Suspect]
     Indication: PANIC DISORDER
     Dosage: 10MG PER DAY
     Route: 048
     Dates: start: 19990101
  2. PAXIL [Suspect]
     Dosage: 37.5MG TWICE PER DAY
     Route: 048
     Dates: start: 20020401
  3. XANAX [Concomitant]
  4. SEROQUEL [Concomitant]

REACTIONS (2)
  - DRUG INEFFECTIVE [None]
  - WEIGHT INCREASED [None]
